FAERS Safety Report 8843048 (Version 3)
Quarter: 2013Q1

REPORT INFORMATION
  Report Type: Spontaneous
  Country: JP (occurrence: JP)
  Receive Date: 20121016
  Receipt Date: 20130129
  Transmission Date: 20140127
  Serious: Yes (Hospitalization)
  Sender: FDA-Public Use
  Company Number: JP-GLAXOSMITHKLINE-B0837641A

PATIENT
  Age: 85 Year
  Sex: Male
  Weight: 48 kg

DRUGS (7)
  1. VALTREX [Suspect]
     Indication: HERPES ZOSTER
     Route: 048
     Dates: start: 20121009, end: 20121009
  2. ROHYPNOL [Concomitant]
     Dosage: .5MG PER DAY
     Route: 048
  3. AMLODIPINE [Concomitant]
     Indication: HYPERTENSION
     Dosage: 5MG PER DAY
     Route: 048
     Dates: start: 2005
  4. FLUITRAN [Concomitant]
     Indication: HYPERTENSION
     Dosage: 1MG PER DAY
     Route: 048
     Dates: start: 2005
  5. METILDIGOXIN [Concomitant]
     Indication: ATRIAL FIBRILLATION
     Dosage: .1MG PER DAY
     Route: 048
     Dates: start: 2005
  6. ARTIST [Concomitant]
     Indication: TACHYCARDIA
     Dosage: 5MG PER DAY
     Route: 048
     Dates: start: 2007
  7. WARFARIN [Concomitant]
     Indication: ATRIAL FIBRILLATION
     Dosage: 1.5MG PER DAY
     Route: 048
     Dates: start: 2007

REACTIONS (6)
  - Delirium [Recovered/Resolved]
  - Depressed level of consciousness [Recovered/Resolved]
  - Restlessness [Recovered/Resolved]
  - Mobility decreased [Recovered/Resolved]
  - Dizziness [Recovered/Resolved]
  - Disorientation [Recovered/Resolved]
